FAERS Safety Report 4863035-0 (Version None)
Quarter: 2005Q4

REPORT INFORMATION
  Report Type: 
  Country: None (occurrence: None)
  Receive Date: 20051221
  Receipt Date: 20051005
  Transmission Date: 20060501
  Serious: Yes (Hospitalization)
  Sender: FDA-Public Use
  Company Number: US-MERCK-0510USA04156

PATIENT
  Age: 56 Year
  Sex: Female
  Weight: 102 kg

DRUGS (4)
  1. VIOXX [Suspect]
     Indication: ARTHRITIS
     Route: 048
     Dates: start: 19990101, end: 20040801
  2. LEXAPRO [Concomitant]
     Route: 065
  3. NEXIUM [Concomitant]
     Route: 065
  4. EXTRA STRENGTH TYLENOL [Concomitant]
     Route: 065

REACTIONS (16)
  - ABDOMINOPLASTY [None]
  - ANGINA PECTORIS [None]
  - ASTHENIA [None]
  - CARDIAC FAILURE [None]
  - CHEST PAIN [None]
  - DEPRESSION [None]
  - DIZZINESS [None]
  - GASTRIC BYPASS [None]
  - GASTROINTESTINAL HAEMORRHAGE [None]
  - HEART RATE DECREASED [None]
  - HERNIA REPAIR [None]
  - HOSPITALISATION [None]
  - KNEE ARTHROPLASTY [None]
  - NEPHROLITHIASIS [None]
  - PAIN [None]
  - SLEEP APNOEA SYNDROME [None]
